FAERS Safety Report 6409460-8 (Version None)
Quarter: 2009Q4

REPORT INFORMATION
  Report Type: 
  Country: None (occurrence: None)
  Receive Date: 20091019
  Receipt Date: 20091008
  Transmission Date: 20100525
  Serious: Yes (Death, Hospitalization)
  Sender: FDA-Public Use
  Company Number: CLOF-10134

PATIENT
  Age: 79 Year
  Sex: Male

DRUGS (8)
  1. CLOLAR [Suspect]
     Indication: ACUTE LEUKAEMIA
     Dosage: 4 MG/M2, QDX5, INTRAVENOUS
     Route: 042
     Dates: start: 20050926, end: 20051028
  2. FLOMAX (MORNIFLUMATE) [Concomitant]
  3. FUROSEMIDE [Concomitant]
  4. KETOCONAZOLE [Concomitant]
  5. DIGOXIN [Concomitant]
  6. FLUCONAZOLE [Concomitant]
  7. SULFAMETHOXAZOLE AND TRIMETHOPRIM [Concomitant]
  8. ASPIRIN [Concomitant]

REACTIONS (9)
  - ANAEMIA [None]
  - DECREASED APPETITE [None]
  - DEHYDRATION [None]
  - FEBRILE NEUTROPENIA [None]
  - HYPOPHAGIA [None]
  - LYMPHOMA [None]
  - MALIGNANT NEOPLASM PROGRESSION [None]
  - PANCYTOPENIA [None]
  - SYNCOPE [None]
